FAERS Safety Report 18086761 (Version 10)
Quarter: 2021Q1

REPORT INFORMATION
  Report Type: Spontaneous
  Country: US (occurrence: US)
  Receive Date: 20200729
  Receipt Date: 20210208
  Transmission Date: 20210419
  Serious: Yes (Other)
  Sender: FDA-Public Use
  Company Number: US-PFIZER INC-2020286818

PATIENT
  Age: 79 Year
  Sex: Female

DRUGS (2)
  1. LYRICA [Suspect]
     Active Substance: PREGABALIN
     Dosage: 175 MG, 2X/DAY
  2. LYRICA [Suspect]
     Active Substance: PREGABALIN
     Dosage: 175 MG, 1X/DAY AT NIGHT

REACTIONS (7)
  - Upper limb fracture [Unknown]
  - Road traffic accident [Unknown]
  - Drug ineffective [Unknown]
  - Limb discomfort [Unknown]
  - Abdominal discomfort [Unknown]
  - Pain in extremity [Unknown]
  - Burning sensation [Unknown]
